FAERS Safety Report 5825781-1 (Version None)
Quarter: 2008Q3

REPORT INFORMATION
  Report Type: 
  Country: None (occurrence: None)
  Receive Date: 20080728
  Receipt Date: 20080728
  Transmission Date: 20090109
  Serious: Yes (Life-Threatening, Hospitalization)
  Sender: FDA-Public Use
  Company Number: None

PATIENT
  Age: 62 Year
  Sex: Male
  Weight: 79.3795 kg

DRUGS (3)
  1. METHOTREXATE [Suspect]
     Indication: RHEUMATOID ARTHRITIS
     Dosage: 15MG WEEKLY PO
     Route: 048
     Dates: start: 20080101, end: 20080422
  2. PREDNISONE TAB [Concomitant]
  3. TYLENOL (CAPLET) [Concomitant]

REACTIONS (3)
  - COUGH [None]
  - DRUG EFFECT DECREASED [None]
  - RESPIRATORY FAILURE [None]
